FAERS Safety Report 19734801 (Version 1)
Quarter: 2021Q3

REPORT INFORMATION
  Report Type: Spontaneous
  Country: TW (occurrence: TW)
  Receive Date: 20210823
  Receipt Date: 20210823
  Transmission Date: 20211014
  Serious: Yes (Other)
  Sender: FDA-Public Use
  Company Number: TW-PURACAP-TW-2021EPCLIT00906

PATIENT
  Age: 21 Year
  Sex: Male

DRUGS (4)
  1. TENOXICAM [Suspect]
     Active Substance: TENOXICAM
     Indication: PRODUCT USED FOR UNKNOWN INDICATION
     Route: 065
  2. ETANERCEPT [Interacting]
     Active Substance: ETANERCEPT
     Indication: TOXIC EPIDERMAL NECROLYSIS
     Route: 065
  3. ISOTRETINOIN. [Interacting]
     Active Substance: ISOTRETINOIN
     Indication: SEBACEOUS GLAND DISORDER
     Route: 048
  4. IBUPROFEN. [Suspect]
     Active Substance: IBUPROFEN
     Indication: PRODUCT USED FOR UNKNOWN INDICATION
     Route: 065

REACTIONS (2)
  - Sebaceous gland disorder [Recovering/Resolving]
  - Toxic epidermal necrolysis [Recovered/Resolved with Sequelae]
